FAERS Safety Report 8791601 (Version 1)
Quarter: 2012Q4

REPORT INFORMATION
  Report Type: 
  Country: NL (occurrence: NL)
  Receive Date: 20120918
  Receipt Date: 20120918
  Transmission Date: 20130627
  Serious: Yes (Other)
  Sender: FDA-Public Use
  Company Number: PHHY2012NL080855

PATIENT
  Sex: Female

DRUGS (1)
  1. MIRTAZAPINE [Suspect]
     Indication: DYSTHYMIC DISORDER
     Dosage: 30 mg, QD

REACTIONS (2)
  - Photopsia [Recovered/Resolved]
  - Constipation [Recovered/Resolved]
